FAERS Safety Report 16544496 (Version 3)
Quarter: 2019Q3

REPORT INFORMATION
  Report Type: Report from Study
  Country: DE (occurrence: DE)
  Receive Date: 20190709
  Receipt Date: 20190827
  Transmission Date: 20191004
  Serious: Yes (Other)
  Sender: FDA-Public Use
  Company Number: PHHY2017DE121539

PATIENT
  Age: 82 Year
  Sex: Male

DRUGS (7)
  1. ENTRESTO [Suspect]
     Active Substance: SACUBITRIL\VALSARTAN
     Dosage: UNK
     Route: 065
  2. TORASEMID [Concomitant]
     Active Substance: TORSEMIDE
     Indication: CARDIAC FAILURE CHRONIC
     Dosage: 200 MG, UNK
     Route: 048
     Dates: start: 20161107
  3. DIGITOXIN [Concomitant]
     Active Substance: DIGITOXIN
     Indication: CARDIAC FAILURE CHRONIC
     Dosage: 0.07 MG, QD
     Route: 048
     Dates: start: 20150501
  4. ENTRESTO [Suspect]
     Active Substance: SACUBITRIL\VALSARTAN
     Indication: CARDIAC FAILURE CHRONIC
     Dosage: 50 MG (SACUBITRIL 24MG/ 26 MG VALSARTAN), BID
     Route: 048
     Dates: start: 20161107, end: 20171123
  5. METOPROLOL SUCCINATE. [Concomitant]
     Active Substance: METOPROLOL SUCCINATE
     Indication: CARDIAC FAILURE CHRONIC
     Dosage: 47.5 MG, UNK
     Route: 048
     Dates: start: 20150629
  6. TOREM [Concomitant]
     Active Substance: TORSEMIDE
     Indication: CARDIAC FAILURE CHRONIC
     Dosage: 10 MG, TID
     Route: 048
     Dates: start: 20161107
  7. TRIAMPUR [Concomitant]
     Active Substance: HYDROCHLOROTHIAZIDE\TRIAMTERENE
     Indication: CARDIAC FAILURE CHRONIC
     Dosage: 100 MG, QD
     Route: 048
     Dates: start: 20170327

REACTIONS (5)
  - Cardiac failure [Recovering/Resolving]
  - Pulmonary congestion [Not Recovered/Not Resolved]
  - Cough [Not Recovered/Not Resolved]
  - Dyspnoea [Recovering/Resolving]
  - Muscle spasticity [Recovering/Resolving]

NARRATIVE: CASE EVENT DATE: 20170810
